FAERS Safety Report 11721150 (Version 1)
Quarter: 2015Q4

REPORT INFORMATION
  Report Type: Spontaneous
  Country: KR (occurrence: KR)
  Receive Date: 20151110
  Receipt Date: 20151110
  Transmission Date: 20160304
  Serious: Yes (Death)
  Sender: FDA-Public Use
  Company Number: KR-IKARIA-201511000278

PATIENT

DRUGS (1)
  1. INOMAX [Suspect]
     Active Substance: NITRIC OXIDE
     Indication: PERSISTENT FOETAL CIRCULATION
     Dosage: 20 PPM, CONTINUOUS
     Dates: start: 20151027, end: 20151028

REACTIONS (1)
  - Death [Fatal]

NARRATIVE: CASE EVENT DATE: 20151028
